FAERS Safety Report 23428649 (Version 2)
Quarter: 2024Q4

REPORT INFORMATION
  Report Type: Report from Study
  Country: JP (occurrence: JP)
  Receive Date: 20240122
  Receipt Date: 20241113
  Transmission Date: 20250114
  Serious: Yes (Death, Life-Threatening, Hospitalization, Other)
  Sender: ALEXION PHARMACEUTICALS
  Company Number: 2023A129546

PATIENT
  Age: 80 Year
  Weight: 55 kg

DRUGS (36)
  1. IMFINZI [Suspect]
     Active Substance: DURVALUMAB
     Indication: Non-small cell lung cancer
     Dosage: 1500 MILLIGRAM, Q3W
  2. IMFINZI [Suspect]
     Active Substance: DURVALUMAB
     Dosage: 1500 MILLIGRAM, Q3W
  3. IMFINZI [Suspect]
     Active Substance: DURVALUMAB
     Dosage: 1500 MILLIGRAM, Q3W
  4. IMFINZI [Suspect]
     Active Substance: DURVALUMAB
     Dosage: 1500 MILLIGRAM, Q3W
  5. IMFINZI [Suspect]
     Active Substance: DURVALUMAB
     Dosage: 1500 MILLIGRAM
  6. IMFINZI [Suspect]
     Active Substance: DURVALUMAB
     Dosage: 1500 MILLIGRAM
  7. IMFINZI [Suspect]
     Active Substance: DURVALUMAB
     Dosage: 1500 MILLIGRAM
  8. IMFINZI [Suspect]
     Active Substance: DURVALUMAB
     Dosage: 1500 MILLIGRAM
  9. TREMELIMUMAB [Suspect]
     Active Substance: TREMELIMUMAB
     Indication: Non-small cell lung cancer
     Dosage: 75 MILLIGRAM, Q3W
  10. TREMELIMUMAB [Suspect]
     Active Substance: TREMELIMUMAB
     Dosage: 75 MILLIGRAM, Q3W
  11. TREMELIMUMAB [Suspect]
     Active Substance: TREMELIMUMAB
     Dosage: 75 MILLIGRAM, Q3W
  12. TREMELIMUMAB [Suspect]
     Active Substance: TREMELIMUMAB
     Dosage: 75 MILLIGRAM, Q3W
  13. CARBOPLATIN [Suspect]
     Active Substance: CARBOPLATIN
     Indication: Non-small cell lung cancer
     Dosage: 275 MILLIGRAM
     Route: 065
  14. CARBOPLATIN [Suspect]
     Active Substance: CARBOPLATIN
     Dosage: 275 MILLIGRAM
  15. CARBOPLATIN [Suspect]
     Active Substance: CARBOPLATIN
     Dosage: 275 MILLIGRAM
     Route: 065
  16. CARBOPLATIN [Suspect]
     Active Substance: CARBOPLATIN
     Dosage: 275 MILLIGRAM
  17. CARBOPLATIN [Suspect]
     Active Substance: CARBOPLATIN
     Dosage: 255 MILLIGRAM
     Route: 065
  18. CARBOPLATIN [Suspect]
     Active Substance: CARBOPLATIN
     Dosage: 255 MILLIGRAM
  19. CARBOPLATIN [Suspect]
     Active Substance: CARBOPLATIN
     Dosage: 255 MILLIGRAM
     Route: 065
  20. CARBOPLATIN [Suspect]
     Active Substance: CARBOPLATIN
     Dosage: 255 MILLIGRAM
  21. CARBOPLATIN [Suspect]
     Active Substance: CARBOPLATIN
     Dosage: 260 MILLIGRAM
     Route: 065
  22. CARBOPLATIN [Suspect]
     Active Substance: CARBOPLATIN
     Dosage: 260 MILLIGRAM
  23. CARBOPLATIN [Suspect]
     Active Substance: CARBOPLATIN
     Dosage: 260 MILLIGRAM
     Route: 065
  24. CARBOPLATIN [Suspect]
     Active Substance: CARBOPLATIN
     Dosage: 260 MILLIGRAM
  25. PACLITAXEL [Suspect]
     Active Substance: PACLITAXEL
     Indication: Non-small cell lung cancer
     Dosage: 120 MILLIGRAM
     Route: 065
  26. PACLITAXEL [Suspect]
     Active Substance: PACLITAXEL
     Dosage: 120 MILLIGRAM
  27. PACLITAXEL [Suspect]
     Active Substance: PACLITAXEL
     Dosage: 115 MILLIGRAM
     Route: 065
  28. PACLITAXEL [Suspect]
     Active Substance: PACLITAXEL
     Dosage: 115 MILLIGRAM
  29. PREDONINE [Suspect]
     Active Substance: PREDNISOLONE
     Indication: Immune-mediated enterocolitis
     Dosage: 25 MILLIGRAM
  30. PREDONINE [Suspect]
     Active Substance: PREDNISOLONE
     Indication: Immune-mediated enterocolitis
     Dosage: 25 MILLIGRAM
  31. PREDONINE [Suspect]
     Active Substance: PREDNISOLONE
     Dosage: 20 MILLIGRAM
  32. PREDONINE [Suspect]
     Active Substance: PREDNISOLONE
     Dosage: 20 MILLIGRAM
  33. PREDONINE [Suspect]
     Active Substance: PREDNISOLONE
     Dosage: 15 MILLIGRAM
  34. PREDONINE [Suspect]
     Active Substance: PREDNISOLONE
     Dosage: 15 MILLIGRAM
  35. PREDONINE [Suspect]
     Active Substance: PREDNISOLONE
     Dosage: 10 MILLIGRAM
  36. PREDONINE [Suspect]
     Active Substance: PREDNISOLONE
     Dosage: 10 MILLIGRAM

REACTIONS (4)
  - Immune-mediated enterocolitis [Recovering/Resolving]
  - Interstitial lung disease [Fatal]
  - Seizure [Recovering/Resolving]
  - Pneumocystis jirovecii pneumonia [Fatal]
